FAERS Safety Report 17754200 (Version 2)
Quarter: 2020Q2

REPORT INFORMATION
  Report Type: Spontaneous
  Country: US (occurrence: US)
  Receive Date: 20200507
  Receipt Date: 20200512
  Transmission Date: 20200714
  Serious: Yes (Death, Hospitalization, Other)
  Sender: FDA-Public Use
  Company Number: US-UNITED THERAPEUTICS-UNT-2020-006793

PATIENT
  Sex: Female
  Weight: 66.21 kg

DRUGS (2)
  1. REMODULIN [Suspect]
     Active Substance: TREPROSTINIL
     Indication: PULMONARY ARTERIAL HYPERTENSION
     Dosage: UNK UNK, CONTINUING
     Route: 041
     Dates: start: 20170901
  2. REMODULIN [Suspect]
     Active Substance: TREPROSTINIL
     Dosage: 0.095 ?G/KG, CONTINUING
     Route: 041

REACTIONS (2)
  - General physical health deterioration [Fatal]
  - Acute myocardial infarction [Unknown]
